FAERS Safety Report 22187028 (Version 2)
Quarter: 2023Q2

REPORT INFORMATION
  Report Type: Spontaneous
  Country: US (occurrence: US)
  Receive Date: 20230407
  Receipt Date: 20230502
  Transmission Date: 20230722
  Serious: No
  Sender: FDA-Public Use
  Company Number: US-BRISTOL-MYERS SQUIBB COMPANY-2023-049991

PATIENT
  Age: 79 Year
  Sex: Female

DRUGS (1)
  1. REVLIMID [Suspect]
     Active Substance: LENALIDOMIDE
     Indication: Plasma cell myeloma
     Dosage: TAKE 1 CAPSULE BY MOUTH DAILY ON DAYS 1 THRU 21 OF  EVERY 28 DAYS.
     Route: 048
     Dates: start: 20230208

REACTIONS (4)
  - Fatigue [Unknown]
  - Vision blurred [Unknown]
  - Stomatitis [Unknown]
  - Asthenia [Unknown]
